FAERS Safety Report 12655624 (Version 4)
Quarter: 2016Q3

REPORT INFORMATION
  Report Type: Spontaneous
  Country: FR (occurrence: FR)
  Receive Date: 20160816
  Receipt Date: 20160926
  Transmission Date: 20161109
  Serious: Yes (Hospitalization, Other)
  Sender: FDA-Public Use
  Company Number: FR-IPSEN BIOPHARMACEUTICALS, INC.-2016-06845

PATIENT
  Age: 53 Year
  Sex: Female

DRUGS (16)
  1. INEXIUM [Suspect]
     Active Substance: ESOMEPRAZOLE
     Indication: PRODUCT USED FOR UNKNOWN INDICATION
     Route: 048
     Dates: start: 20160617, end: 20160719
  2. SOMATULINE AUTOGEL [Suspect]
     Active Substance: LANREOTIDE ACETATE
     Indication: PANCREATIC NEUROENDOCRINE TUMOUR
     Dosage: 30 MG
     Route: 030
     Dates: start: 20160629, end: 20160629
  3. VANCOMYCINE [Suspect]
     Active Substance: VANCOMYCIN
     Indication: LIVER ABSCESS
     Route: 042
     Dates: start: 20160617, end: 20160718
  4. SKENAN [Suspect]
     Active Substance: MORPHINE SULFATE
     Indication: ANALGESIC THERAPY
     Route: 048
     Dates: start: 20160617, end: 20160723
  5. MOVICOL [Concomitant]
     Active Substance: POLYETHYLENE GLYCOL 3350\POTASSIUM CHLORIDE\SODIUM BICARBONATE\SODIUM CHLORIDE
  6. PRIMPERAN [Concomitant]
     Active Substance: METOCLOPRAMIDE HYDROCHLORIDE
  7. LOVENOX [Suspect]
     Active Substance: ENOXAPARIN SODIUM
     Indication: THROMBOSIS PROPHYLAXIS
     Route: 058
     Dates: start: 20160621, end: 20160715
  8. IOMERON [Suspect]
     Active Substance: IOMEPROL
     Indication: COMPUTERISED TOMOGRAM
     Route: 042
     Dates: start: 20160629, end: 20160629
  9. IMOVANE [Suspect]
     Active Substance: ZOPICLONE
     Indication: PRODUCT USED FOR UNKNOWN INDICATION
     Route: 048
     Dates: start: 20160617, end: 20160719
  10. ACTISKENAN [Concomitant]
     Active Substance: MORPHINE SULFATE
  11. FLAGYL [Suspect]
     Active Substance: METRONIDAZOLE\METRONIDAZOLE HYDROCHLORIDE
     Indication: LIVER ABSCESS
     Route: 042
     Dates: start: 20160625, end: 20160710
  12. HYDROXYZINE [Suspect]
     Active Substance: HYDROXYZINE\HYDROXYZINE HYDROCHLORIDE
     Indication: PROCEDURAL ANXIETY
     Route: 048
     Dates: start: 20160618, end: 20160618
  13. PARACETAMOL [Suspect]
     Active Substance: ACETAMINOPHEN
     Indication: ANALGESIC THERAPY
     Route: 042
     Dates: start: 20160618, end: 20160704
  14. ALPRAZOLAM. [Suspect]
     Active Substance: ALPRAZOLAM
     Indication: PROCEDURAL ANXIETY
     Route: 048
     Dates: start: 20160618, end: 20160618
  15. PIPERACILLIN AND TAZOBACTAM [Suspect]
     Active Substance: PIPERACILLIN SODIUM\TAZOBACTAM SODIUM
     Indication: LIVER ABSCESS
     Route: 042
     Dates: start: 20160118, end: 20160711
  16. SOMATULINE L.P. 90MG [Suspect]
     Active Substance: LANREOTIDE ACETATE
     Indication: PANCREATIC NEUROENDOCRINE TUMOUR
     Dosage: 90 MG
     Route: 065
     Dates: start: 201509

REACTIONS (11)
  - Toxic skin eruption [Unknown]
  - Rash generalised [Unknown]
  - Face oedema [Unknown]
  - Drug reaction with eosinophilia and systemic symptoms [Unknown]
  - Erythema [Recovered/Resolved]
  - Eyelid oedema [Unknown]
  - Oedema peripheral [Unknown]
  - Rash maculo-papular [Unknown]
  - Liver abscess [Unknown]
  - Erythema [Unknown]
  - Lymphadenopathy [Unknown]

NARRATIVE: CASE EVENT DATE: 2016
